FAERS Safety Report 6589178 (Version 4)
Quarter: 2014Q3

REPORT INFORMATION
  Report Type: Spontaneous
  Country: SE (occurrence: SE)
  Receive Date: 20080320
  Receipt Date: 20140728
  Transmission Date: 20150326
  Serious: Yes (Hospitalization, Other)
  Sender: FDA-Public Use
  Company Number: SE-RANBAXY-2008US-13832

PATIENT

DRUGS (4)
  1. VERAPAMIL HYDROCHLORIDE. [Suspect]
     Active Substance: VERAPAMIL HYDROCHLORIDE
     Indication: HYPERTENSION
     Dosage: UNK
  2. ALLOPURINOL. [Suspect]
     Active Substance: ALLOPURINOL
     Indication: HYPERTENSION
  3. ENALAPRIL [Suspect]
     Active Substance: ENALAPRIL
     Indication: HYPERTENSION
  4. VERAPAMIL HYDROCHLORIDE. [Suspect]
     Active Substance: VERAPAMIL HYDROCHLORIDE
     Indication: RENAL FAILURE

REACTIONS (6)
  - Bradycardia [Not Recovered/Not Resolved]
  - Nephrosclerosis [Unknown]
  - Renal failure [Not Recovered/Not Resolved]
  - Bundle branch block left [Unknown]
  - Presyncope [Unknown]
  - Dehydration [Unknown]

NARRATIVE: CASE EVENT DATE: 20080211
